FAERS Safety Report 25377657 (Version 2)
Quarter: 2025Q2

REPORT INFORMATION
  Report Type: Spontaneous
  Country: CN (occurrence: CN)
  Receive Date: 20250530
  Receipt Date: 20250612
  Transmission Date: 20250716
  Serious: Yes (Death, Other)
  Sender: BAXTER
  Company Number: CN-BAXTER-2025BAX015997

PATIENT
  Age: 76 Year
  Sex: Male

DRUGS (5)
  1. MANNITOL [Suspect]
     Active Substance: MANNITOL
     Indication: Bowel preparation
     Route: 065
  2. ATROPINE [Concomitant]
     Active Substance: ATROPINE
     Indication: Resuscitation
     Route: 065
     Dates: start: 20230131
  3. EPHEDRINE [Concomitant]
     Active Substance: EPHEDRINE
     Indication: Resuscitation
     Route: 065
     Dates: start: 20230131
  4. DOPAMINE [Concomitant]
     Active Substance: DOPAMINE HYDROCHLORIDE
     Indication: Resuscitation
     Route: 042
     Dates: start: 20230131
  5. NOREPINEPHRINE [Concomitant]
     Active Substance: NOREPINEPHRINE
     Indication: Resuscitation
     Route: 042
     Dates: start: 20230131

REACTIONS (11)
  - Gastrointestinal injury [Fatal]
  - Acute respiratory distress syndrome [Unknown]
  - Gastrointestinal perforation [Fatal]
  - Flatulence [Fatal]
  - Peritonitis [Fatal]
  - Abdominal pain [Fatal]
  - Abdominal rigidity [Fatal]
  - Muscle tightness [Fatal]
  - Ascites [Fatal]
  - Gastrointestinal sounds abnormal [Fatal]
  - Dyspnoea [Unknown]

NARRATIVE: CASE EVENT DATE: 20230131
